FAERS Safety Report 5986340-3 (Version None)
Quarter: 2008Q4

REPORT INFORMATION
  Report Type: 
  Country: None (occurrence: None)
  Receive Date: 20081203
  Receipt Date: 20081118
  Transmission Date: 20090506
  Serious: Yes (Hospitalization)
  Sender: FDA-Public Use
  Company Number: 1-16951844

PATIENT
  Age: 80 Year
  Sex: Female

DRUGS (7)
  1. PROPAFENONE HCL [Suspect]
     Indication: ATRIAL FIBRILLATION
     Dosage: 900 MG PER DAY, ORAL
     Route: 048
  2. CITALOPRAM [Suspect]
     Indication: ANXIETY
     Dosage: 20 MG PER DAY, ORAL
     Route: 048
     Dates: start: 20060201
  3. DIGOXIN [Concomitant]
  4. ISOSORBIDE DINITRATE [Concomitant]
  5. SPIRONOLACTONE/HYDROCHLOROTHIAZIDE [Concomitant]
  6. SIMVASTATIN [Concomitant]
  7. ACETYLSALICYLIC AICD [Concomitant]

REACTIONS (7)
  - ATRIAL FIBRILLATION [None]
  - CARDIOACTIVE DRUG LEVEL BELOW THERAPEUTIC [None]
  - CHEST DISCOMFORT [None]
  - DELIRIUM [None]
  - DIZZINESS [None]
  - DRUG INTERACTION [None]
  - FALL [None]
